FAERS Safety Report 4993463-4 (Version None)
Quarter: 2006Q2

REPORT INFORMATION
  Report Type: 
  Country: None (occurrence: None)
  Receive Date: 20060503
  Receipt Date: 20060503
  Transmission Date: 20061013
  Serious: No
  Sender: FDA-Public Use
  Company Number: None

PATIENT

DRUGS (2)
  1. ELOXATIN [Suspect]
     Indication: CHEMOTHERAPY
  2. ELOXATIN [Suspect]

REACTIONS (1)
  - MEDICATION ERROR [None]
